FAERS Safety Report 20683279 (Version 1)
Quarter: 2022Q2

REPORT INFORMATION
  Report Type: Spontaneous
  Country: US (occurrence: US)
  Receive Date: 20220407
  Receipt Date: 20220407
  Transmission Date: 20220721
  Serious: Yes (Other)
  Sender: FDA-Public Use
  Company Number: US-sptaiwan-2022SUN001082

PATIENT
  Age: 16 Year
  Sex: Female
  Weight: 60.771 kg

DRUGS (2)
  1. LATUDA [Suspect]
     Active Substance: LURASIDONE HYDROCHLORIDE
     Indication: Schizoaffective disorder bipolar type
     Dosage: 20 MG, QD
     Route: 048
  2. LATUDA [Suspect]
     Active Substance: LURASIDONE HYDROCHLORIDE
     Indication: Bipolar I disorder
     Dosage: 30 MG, QD
     Route: 048

REACTIONS (8)
  - Loss of consciousness [Unknown]
  - Gastric dilatation [Unknown]
  - Fall [Unknown]
  - Irritability [Unknown]
  - Somnolence [Unknown]
  - Amenorrhoea [Unknown]
  - Weight increased [Unknown]
  - Product dose omission issue [Unknown]
